FAERS Safety Report 8326620-X (Version None)
Quarter: 2012Q2

REPORT INFORMATION
  Report Type: 
  Country: None (occurrence: None)
  Receive Date: 20120501
  Receipt Date: 20120424
  Transmission Date: 20120825
  Serious: Yes (Hospitalization, Other)
  Sender: FDA-Public Use
  Company Number: US-PFIZER INC-2012101033

PATIENT

DRUGS (4)
  1. VITAMIN C [Suspect]
     Dosage: UNK
  2. IBUPROFEN [Suspect]
     Dosage: 2-3 TABS
  3. TYLENOL (CAPLET) [Suspect]
     Dosage: UNK
  4. NEURONTIN [Suspect]
     Dosage: UNK
     Route: 048

REACTIONS (14)
  - RECTAL HAEMORRHAGE [None]
  - TACHYCARDIA [None]
  - SOMNOLENCE [None]
  - PALLOR [None]
  - HAEMATOCHEZIA [None]
  - VISION BLURRED [None]
  - HYPOTENSION [None]
  - SEDATION [None]
  - ASTHENIA [None]
  - NAUSEA [None]
  - PHOTOPHOBIA [None]
  - ORTHOSTATIC HEART RATE RESPONSE INCREASED [None]
  - HEADACHE [None]
  - FREQUENT BOWEL MOVEMENTS [None]
